FAERS Safety Report 21343429 (Version 1)
Quarter: 2022Q3

REPORT INFORMATION
  Report Type: Spontaneous
  Country: US (occurrence: US)
  Receive Date: 20220916
  Receipt Date: 20220916
  Transmission Date: 20221026
  Serious: No
  Sender: FDA-Public Use
  Company Number: US-PFIZER INC-PV202200063508

PATIENT

DRUGS (1)
  1. ESTRADIOL [Suspect]
     Active Substance: ESTRADIOL
     Dosage: UNK

REACTIONS (9)
  - Drug ineffective [Unknown]
  - Crying [Unknown]
  - Poor quality sleep [Unknown]
  - Hot flush [Unknown]
  - Depression [Unknown]
  - Restless legs syndrome [Unknown]
  - Irritability [Unknown]
  - Sluggishness [Unknown]
  - Agitation [Unknown]
